FAERS Safety Report 9159241 (Version 1)
Quarter: 2013Q1

REPORT INFORMATION
  Report Type: Spontaneous
  Country: US (occurrence: None)
  Receive Date: 20130311
  Receipt Date: 20130311
  Transmission Date: 20140127
  Serious: Yes (Death)
  Sender: FDA-Public Use
  Company Number: B0873140A

PATIENT
  Age: 4 Year
  Sex: 0

DRUGS (3)
  1. MELPHALAN [Suspect]
     Indication: BONE MARROW TRANSPLANT
  2. FLUDARABINE PHOSPHATE [Suspect]
     Indication: BONE MARROW TRANSPLANT
  3. ALEMTUZUMAB [Suspect]
     Indication: BONE MARROW TRANSPLANT

REACTIONS (3)
  - Acute respiratory distress syndrome [None]
  - Pneumonitis [None]
  - Respiratory failure [None]
